FAERS Safety Report 5737686-5 (Version None)
Quarter: 2008Q2

REPORT INFORMATION
  Report Type: 
  Country: None (occurrence: None)
  Receive Date: 20080512
  Receipt Date: 20080512
  Transmission Date: 20081010
  Serious: Yes (Other)
  Sender: FDA-Public Use
  Company Number: None

PATIENT
  Age: 82 Year
  Sex: Female
  Weight: 55.3388 kg

DRUGS (1)
  1. DIGITEK  0.125   ACTAVIS TOTOWA LLC [Suspect]
     Indication: CARDIAC DISORDER
     Dosage: ONE PER DAY
     Dates: start: 20080408, end: 20080423

REACTIONS (6)
  - ABDOMINAL PAIN UPPER [None]
  - DIARRHOEA [None]
  - NAUSEA [None]
  - PAIN [None]
  - THERAPEUTIC AGENT TOXICITY [None]
  - VOMITING [None]
